FAERS Safety Report 5477637-4 (Version None)
Quarter: 2007Q4

REPORT INFORMATION
  Report Type: 
  Country: None (occurrence: None)
  Receive Date: 20071002
  Receipt Date: 20070928
  Transmission Date: 20080405
  Serious: Yes (Hospitalization, Other)
  Sender: FDA-Public Use
  Company Number: VISP-NO-0709S-0426

PATIENT
  Age: 54 Year
  Sex: Female

DRUGS (8)
  1. VISIPAQUE [Suspect]
     Indication: COLON CANCER
     Dosage: 120 ML, SINGLE DOSE, I.V.
     Route: 042
     Dates: start: 20070918, end: 20070918
  2. MEGLUMINE AMIDOTRIZOATE AND SODIUM  AMIDOTRIZOATE (GASTROGRAFIN) [Suspect]
  3. VESIPAQUE [Suspect]
  4. VESIPAQUE [Suspect]
  5. VESIPAQUE [Suspect]
  6. VESIPAQUE [Suspect]
     Indication: COLON CANCER
  7. VESIPAQUE [Suspect]
  8. VESIPAQUE [Suspect]
     Indication: COLON CANCER

REACTIONS (7)
  - DYSPNOEA [None]
  - HEPATORENAL SYNDROME [None]
  - MALAISE [None]
  - MYALGIA [None]
  - ORAL HERPES [None]
  - PYREXIA [None]
  - VOMITING [None]
